FAERS Safety Report 7157567-2 (Version None)
Quarter: 2010Q4

REPORT INFORMATION
  Report Type: 
  Country: None (occurrence: None)
  Receive Date: 20101214
  Receipt Date: 20100224
  Transmission Date: 20110411
  Serious: No
  Sender: FDA-Public Use
  Company Number: US-ASTRAZENECA-2010SE08107

PATIENT
  Age: 69 Year
  Sex: Female
  Weight: 57.6 kg

DRUGS (7)
  1. CRESTOR [Suspect]
     Indication: HYPERCHOLESTEROLAEMIA
     Route: 048
  2. NIASPAN [Concomitant]
  3. ASPIRIN [Concomitant]
     Route: 065
  4. RAMIPRIL [Concomitant]
     Route: 065
  5. FISH OIL [Concomitant]
     Route: 065
  6. VITAMIN D [Concomitant]
     Route: 065
  7. ESTRADERM [Concomitant]
     Route: 065

REACTIONS (10)
  - AMNESIA [None]
  - APHASIA [None]
  - CHILLS [None]
  - CONFUSIONAL STATE [None]
  - DEPRESSION [None]
  - DISTURBANCE IN ATTENTION [None]
  - DYSLEXIA [None]
  - FATIGUE [None]
  - JUDGEMENT IMPAIRED [None]
  - MEMORY IMPAIRMENT [None]
